FAERS Safety Report 6695567-7 (Version None)
Quarter: 2010Q2

REPORT INFORMATION
  Report Type: 
  Country: None (occurrence: None)
  Receive Date: 20100426
  Receipt Date: 20100415
  Transmission Date: 20101027
  Serious: No
  Sender: FDA-Public Use
  Company Number: US-BIOGENIDEC-2009BI017544

PATIENT
  Sex: Female

DRUGS (1)
  1. TYSABRI [Suspect]
     Indication: MULTIPLE SCLEROSIS
     Route: 042
     Dates: start: 20090423

REACTIONS (12)
  - ATAXIA [None]
  - BALANCE DISORDER [None]
  - DRUG INEFFECTIVE [None]
  - DYSGRAPHIA [None]
  - FALL [None]
  - HEAD INJURY [None]
  - MEMORY IMPAIRMENT [None]
  - MOBILITY DECREASED [None]
  - MUSCLE SPASTICITY [None]
  - PAIN IN EXTREMITY [None]
  - PROGRESSIVE MULTIPLE SCLEROSIS [None]
  - TREMOR [None]
